FAERS Safety Report 24427173 (Version 2)
Quarter: 2024Q4

REPORT INFORMATION
  Report Type: Spontaneous
  Country: US (occurrence: US)
  Receive Date: 20241011
  Receipt Date: 20241011
  Transmission Date: 20250115
  Serious: No
  Sender: SANDOZ
  Company Number: US-SANDOZ-SDZ2024US060658

PATIENT
  Sex: Male

DRUGS (1)
  1. HYRIMOZ [Suspect]
     Active Substance: ADALIMUMAB-ADAZ
     Indication: Product used for unknown indication
     Dosage: UNK, 40MG/0.4ML 2LISY PE BI US
     Route: 065

REACTIONS (3)
  - Injection site haemorrhage [Unknown]
  - Injection site reaction [Unknown]
  - Device colour issue [Unknown]
